FAERS Safety Report 19878709 (Version 1)
Quarter: 2021Q3

REPORT INFORMATION
  Report Type: Report from Study
  Country: US (occurrence: US)
  Receive Date: 20210923
  Receipt Date: 20210923
  Transmission Date: 20211014
  Serious: Yes (Hospitalization)
  Sender: FDA-Public Use
  Company Number: US-ROCHE-2914123

PATIENT
  Sex: Male
  Weight: 84.8 kg

DRUGS (3)
  1. TOCILIZUMAB. [Suspect]
     Active Substance: TOCILIZUMAB
     Indication: MALIGNANT MELANOMA
     Route: 065
  2. IPILIMUMAB [Suspect]
     Active Substance: IPILIMUMAB
     Indication: MALIGNANT MELANOMA
     Route: 042
     Dates: start: 20210615, end: 20210826
  3. NIVOLUMAB [Suspect]
     Active Substance: NIVOLUMAB
     Indication: MALIGNANT MELANOMA
     Route: 042
     Dates: start: 20210615, end: 20210826

REACTIONS (3)
  - Aspartate aminotransferase increased [Unknown]
  - Hyponatraemia [Unknown]
  - Alanine aminotransferase increased [Unknown]
